FAERS Safety Report 5410858-5 (Version None)
Quarter: 2007Q3

REPORT INFORMATION
  Report Type: 
  Country: None (occurrence: None)
  Receive Date: 20070810
  Receipt Date: 20070730
  Transmission Date: 20080115
  Serious: Yes (Hospitalization)
  Sender: FDA-Public Use
  Company Number: PHHO2007MX12867

PATIENT
  Sex: Female

DRUGS (2)
  1. ZELNORM [Suspect]
     Indication: IRRITABLE BOWEL SYNDROME
     Dosage: 6 MG, TID
     Route: 048
     Dates: start: 20070601, end: 20070715
  2. ANTIBIOTICS [Concomitant]

REACTIONS (2)
  - DYSURIA [None]
  - RENAL SURGERY [None]
